FAERS Safety Report 10362083 (Version 1)
Quarter: 2014Q3

REPORT INFORMATION
  Report Type: Not Available
  Country: IT (occurrence: IT)
  Receive Date: 20140805
  Receipt Date: 20140805
  Transmission Date: 20150326
  Serious: Yes (Hospitalization, Other)
  Sender: FDA-Public Use
  Company Number: IT-MUNDIPHARMA DS AND PHARMACOVIGILANCE-GBR-2014-0019692

PATIENT
  Age: 36 Year
  Sex: Female

DRUGS (9)
  1. LYRICA [Suspect]
     Active Substance: PREGABALIN
     Indication: PAIN
     Dosage: 450 MG, DAILY
     Route: 048
     Dates: start: 20140527, end: 20140604
  2. RANITIDINE [Concomitant]
     Active Substance: RANITIDINE\RANITIDINE HYDROCHLORIDE
     Indication: PREMEDICATION
     Dosage: 100 MG, DAILY
     Route: 042
     Dates: start: 20140531, end: 20140603
  3. CLEXANE T [Concomitant]
     Active Substance: ENOXAPARIN SODIUM
     Dosage: 6000 UNIT, DAILY
     Route: 058
  4. TARGIN COMPRESSA A RILASCIO PROLUNGATO CONTIENE 20MG/10MG [Suspect]
     Active Substance: NALOXONE HYDROCHLORIDE\OXYCODONE HYDROCHLORIDE
     Indication: PAIN
     Dosage: 100/50 MG, DAILY
     Route: 048
     Dates: start: 20140429, end: 20140604
  5. HOLOXAN-UROMITEXAN [Suspect]
     Active Substance: IFOSFAMIDE\MESNA
     Indication: CHEMOTHERAPY
     Dosage: 5600 MG, DAILY
     Route: 042
     Dates: start: 20140531, end: 20140603
  6. TORA-DOL [Concomitant]
     Active Substance: KETOROLAC TROMETHAMINE
     Dosage: 90 MG, DAILY
     Route: 048
  7. PANTOPRAZOLE [Concomitant]
     Active Substance: PANTOPRAZOLE SODIUM
     Dosage: 40 MG, DAILY
     Route: 048
  8. SOLDESAM [Concomitant]
     Active Substance: DEXAMETHASONE
     Indication: PREMEDICATION
     Dosage: 8 MG, DAILY
     Route: 042
     Dates: start: 20140531, end: 20140603
  9. KYTRIL [Concomitant]
     Active Substance: GRANISETRON HYDROCHLORIDE
     Indication: PREMEDICATION
     Dosage: 3 MG, DAILY
     Route: 042
     Dates: start: 20140531, end: 20140603

REACTIONS (2)
  - Sopor [Recovered/Resolved]
  - Electroencephalogram abnormal [None]

NARRATIVE: CASE EVENT DATE: 20140603
